FAERS Safety Report 4793484-0 (Version None)
Quarter: 2005Q4

REPORT INFORMATION
  Report Type: 
  Country: None (occurrence: None)
  Receive Date: 20051011
  Receipt Date: 20050808
  Transmission Date: 20060501
  Serious: No
  Sender: FDA-Public Use
  Company Number: US-BRISTOL-MYERS SQUIBB COMPANY-13066394

PATIENT
  Age: 76 Year
  Sex: Female

DRUGS (6)
  1. GLUCOPHAGE XR [Suspect]
     Route: 048
  2. SYNTHROID [Concomitant]
  3. NORPACE [Concomitant]
  4. DRAMAMINE [Concomitant]
  5. VIOXX [Concomitant]
  6. MULTI-VITAMIN [Concomitant]

REACTIONS (1)
  - BLOOD GLUCOSE INCREASED [None]
